FAERS Safety Report 13042323 (Version 1)
Quarter: 2016Q4

REPORT INFORMATION
  Report Type: Spontaneous
  Country: US (occurrence: US)
  Receive Date: 20161219
  Receipt Date: 20161219
  Transmission Date: 20170207
  Serious: Yes (Hospitalization)
  Sender: FDA-Public Use
  Company Number: US-FRESENIUS MEDICAL CARE RENAL THERAPIES GROUP-FMC-1611-001275

PATIENT
  Sex: Female
  Weight: 41 kg

DRUGS (1)
  1. DELFLEX [Suspect]
     Active Substance: CALCIUM CHLORIDE\DEXTROSE\MAGNESIUM CHLORIDE\SODIUM CHLORIDE\SODIUM LACTATE
     Indication: END STAGE RENAL DISEASE
     Dosage: FILL VOLUMES OF 2000ML WITH SIX TREATMENT CYCLES AND NO LAST FILL.
     Route: 033

REACTIONS (5)
  - Complication associated with device [None]
  - Hypervolaemia [Recovered/Resolved]
  - Infection [None]
  - Pulmonary oedema [None]
  - Pneumonia [None]
